FAERS Safety Report 9508411 (Version 1)
Quarter: 2013Q3

REPORT INFORMATION
  Report Type: Spontaneous
  Country: ES (occurrence: None)
  Receive Date: 20130905
  Receipt Date: 20130905
  Transmission Date: 20140515
  Serious: Yes (Other)
  Sender: FDA-Public Use
  Company Number: NGX_01945_2013

PATIENT
  Sex: Female

DRUGS (5)
  1. QUTENZA [Suspect]
     Indication: NEURALGIA
     Dosage: (DF [PATCH, APPLIED TO GLUTEUS, QUATERLY] TOPICAL)
     Dates: start: 20130819, end: 20130819
  2. QUTENZA [Suspect]
     Indication: OFF LABEL USE
     Dosage: (DF [PATCH, APPLIED TO GLUTEUS, QUATERLY] TOPICAL)
     Dates: start: 20130819, end: 20130819
  3. TRAMADOL [Concomitant]
  4. NEURONTIN [Concomitant]
  5. PAROXETINE [Concomitant]

REACTIONS (2)
  - Vomiting [None]
  - Dizziness [None]
